FAERS Safety Report 9580933 (Version 1)
Quarter: 2013Q4

REPORT INFORMATION
  Report Type: Spontaneous
  Country: US (occurrence: US)
  Receive Date: 20131002
  Receipt Date: 20131002
  Transmission Date: 20140711
  Serious: No
  Sender: FDA-Public Use
  Company Number: US-PFIZER INC-2013281439

PATIENT
  Sex: Female

DRUGS (2)
  1. LYRICA [Suspect]
     Indication: HERPES ZOSTER
     Dosage: UNK
     Dates: start: 20130903
  2. ALEVE [Suspect]
     Indication: HERPES ZOSTER
     Dosage: UNK
     Dates: start: 2013

REACTIONS (3)
  - Screaming [Unknown]
  - Pain [Unknown]
  - Drug ineffective [Unknown]
